FAERS Safety Report 12483588 (Version 1)
Quarter: 2016Q2

REPORT INFORMATION
  Report Type: Report from Study
  Country: TR (occurrence: TR)
  Receive Date: 20160621
  Receipt Date: 20160621
  Transmission Date: 20160815
  Serious: Yes (Other)
  Sender: FDA-Public Use
  Company Number: TR-BAXTER-2016BAX032485

PATIENT

DRUGS (7)
  1. AERRANE [Suspect]
     Active Substance: ISOFLURANE
     Indication: MAINTENANCE OF ANAESTHESIA
     Route: 055
  2. VECURONIUM [Suspect]
     Active Substance: VECURONIUM BROMIDE
     Indication: INDUCTION OF ANAESTHESIA
     Route: 065
  3. PROPOFOL. [Suspect]
     Active Substance: PROPOFOL
     Indication: SEDATIVE THERAPY
     Dosage: 25 TO 50 MICROGRAM/(KG MIN)
     Route: 042
  4. FENTANYL. [Suspect]
     Active Substance: FENTANYL
     Indication: INDUCTION OF ANAESTHESIA
     Route: 065
  5. N2O/O2 [Suspect]
     Active Substance: NITROUS OXIDE\OXYGEN
     Indication: MAINTENANCE OF ANAESTHESIA
     Dosage: 2:1 RATIO
     Route: 065
  6. PROPOFOL. [Suspect]
     Active Substance: PROPOFOL
     Indication: INDUCTION OF ANAESTHESIA
     Route: 065
  7. FENTANYL. [Suspect]
     Active Substance: FENTANYL
     Indication: MAINTENANCE OF ANAESTHESIA
     Route: 065

REACTIONS (2)
  - Atelectasis [Unknown]
  - Pneumonitis [Unknown]
